FAERS Safety Report 24682313 (Version 1)
Quarter: 2024Q4

REPORT INFORMATION
  Report Type: Spontaneous
  Country: US (occurrence: US)
  Receive Date: 20241130
  Receipt Date: 20241130
  Transmission Date: 20250115
  Serious: No
  Sender: TORRENT PHARMA INC.
  Company Number: US-TORRENT-00013869

PATIENT
  Sex: Female

DRUGS (1)
  1. ISOSORBIDE MONONITRATE [Suspect]
     Active Substance: ISOSORBIDE MONONITRATE
     Indication: Product used for unknown indication
     Dosage: TWICE A DAY (PROLONGED RELEASE TABLET) EXTENDED-RELEASE TABLET
     Route: 065

REACTIONS (1)
  - Product prescribing error [Unknown]
